FAERS Safety Report 9174351 (Version 1)
Quarter: 2013Q1

REPORT INFORMATION
  Report Type: Spontaneous
  Country: US (occurrence: None)
  Receive Date: 20130314
  Receipt Date: 20130314
  Transmission Date: 20140127
  Serious: Yes (Other)
  Sender: FDA-Public Use
  Company Number: 2013-000643

PATIENT
  Age: 50 Year
  Sex: Male

DRUGS (1)
  1. ASACOL [Suspect]
     Indication: CROHN^S DISEASE

REACTIONS (5)
  - Nephrotic syndrome [None]
  - Hypercholesterolaemia [None]
  - Glomerulonephritis minimal lesion [None]
  - Hypoproteinaemia [None]
  - Hypoalbuminaemia [None]
